FAERS Safety Report 19996653 (Version 1)
Quarter: 2021Q4

REPORT INFORMATION
  Report Type: Spontaneous
  Country: CN (occurrence: CN)
  Receive Date: 20211026
  Receipt Date: 20211026
  Transmission Date: 20220304
  Serious: Yes (Hospitalization)
  Sender: FDA-Public Use
  Company Number: CN-BAYER-2021A237551

PATIENT
  Age: 50 Year
  Sex: Male
  Weight: 61 kg

DRUGS (4)
  1. STIVARGA [Suspect]
     Active Substance: REGORAFENIB
     Indication: Hepatic cancer
     Dosage: 40 MG, BID
     Route: 048
     Dates: start: 20210829, end: 20210918
  2. CAMRELIZUMAB [Suspect]
     Active Substance: CAMRELIZUMAB
     Indication: Hepatocellular carcinoma
     Dosage: 200 MG, QD
     Route: 041
     Dates: start: 20210927, end: 20210927
  3. CAMRELIZUMAB [Suspect]
     Active Substance: CAMRELIZUMAB
     Indication: Immune enhancement therapy
  4. SODIUM CHLORIDE [Concomitant]
     Active Substance: SODIUM CHLORIDE
     Indication: Vehicle solution use
     Dosage: 100 ML, QD
     Route: 041
     Dates: start: 20210927, end: 20210927

REACTIONS (4)
  - Myelosuppression [Unknown]
  - Palpitations [Unknown]
  - Chest discomfort [Unknown]
  - Off label use [None]

NARRATIVE: CASE EVENT DATE: 20210829
